APPROVED DRUG PRODUCT: ACTOS
Active Ingredient: PIOGLITAZONE HYDROCHLORIDE
Strength: EQ 45MG BASE
Dosage Form/Route: TABLET;ORAL
Application: N021073 | Product #003 | TE Code: AB
Applicant: TAKEDA PHARMACEUTICALS USA INC
Approved: Jul 15, 1999 | RLD: Yes | RS: Yes | Type: RX